FAERS Safety Report 10143426 (Version 1)
Quarter: 2014Q2

REPORT INFORMATION
  Report Type: Spontaneous
  Country: JP (occurrence: JP)
  Receive Date: 20140430
  Receipt Date: 20140430
  Transmission Date: 20141212
  Serious: Yes (Death)
  Sender: FDA-Public Use
  Company Number: JP-MALLINCKRODT-T201402009

PATIENT
  Age: 60 Year
  Sex: Female
  Weight: 38.5 kg

DRUGS (16)
  1. METHADONE [Suspect]
     Indication: CANCER PAIN
     Dosage: 5 MG (15 MG DAILY DOSE)
     Route: 048
     Dates: start: 20130822, end: 20130828
  2. METHADONE [Suspect]
     Dosage: 10 MG (20 MG DAILY DOSE)
     Route: 048
     Dates: start: 20130829, end: 20130904
  3. METHADONE [Suspect]
     Dosage: 15 MG (30 MG DAILY DOSE)
     Route: 048
     Dates: start: 20130905, end: 20130916
  4. METHADONE [Suspect]
     Dosage: 20 MG (40 MG DAILY DOSE)
     Route: 048
     Dates: start: 20130917, end: 20131211
  5. OXINORM [Concomitant]
     Dosage: UNK, PRN
     Route: 048
     Dates: start: 20130821
  6. FENTOS [Concomitant]
     Dosage: 32 MG
     Route: 062
     Dates: start: 20130117, end: 20130820
  7. FENTOS [Concomitant]
     Dosage: 28 MG
     Route: 062
     Dates: start: 20130821, end: 20130901
  8. FENTOS [Concomitant]
     Dosage: 32 MG
     Route: 062
     Dates: start: 20130901, end: 20131211
  9. OXYCONTIN [Concomitant]
     Dosage: 240 MG
     Route: 048
     Dates: start: 20120807, end: 20131211
  10. LYRICA [Concomitant]
     Dosage: 150 MG
     Route: 048
     Dates: start: 20120508, end: 20131211
  11. MUCODYNE [Concomitant]
     Dosage: 1500 MG
     Route: 048
     Dates: end: 20131211
  12. LENDORMIN [Concomitant]
     Dosage: 0.25 MG, UNK
     Route: 048
     Dates: end: 20131211
  13. PREDONINE [Concomitant]
     Dosage: 10 MG
     Route: 048
     Dates: start: 20130131, end: 20131211
  14. PANTOSIN [Concomitant]
     Dosage: 600 MG
     Route: 048
     Dates: start: 20130529, end: 20131211
  15. MAGLAX [Concomitant]
     Dosage: 1980 MG
     Route: 048
     Dates: start: 20130529, end: 20131211
  16. PARIET [Concomitant]
     Dosage: 10 MG
     Route: 048
     Dates: start: 20130709, end: 20131211

REACTIONS (1)
  - Lung neoplasm malignant [Fatal]
